FAERS Safety Report 10410021 (Version 1)
Quarter: 2014Q3

REPORT INFORMATION
  Report Type: Spontaneous
  Country: CA (occurrence: CA)
  Receive Date: 20140826
  Receipt Date: 20140826
  Transmission Date: 20150326
  Serious: Yes (Other)
  Sender: FDA-Public Use
  Company Number: PHHY2014CA103573

PATIENT
  Sex: Female

DRUGS (5)
  1. BUPIVACAINE [Suspect]
     Active Substance: BUPIVACAINE
  2. MORPHINE [Suspect]
     Active Substance: MORPHINE
     Dosage: 150 UG, UNK
  3. DOXYLAMINE [Suspect]
     Active Substance: DOXYLAMINE
  4. ONDANSETRON [Suspect]
     Active Substance: ONDANSETRON
  5. FENTANYL. [Suspect]
     Active Substance: FENTANYL
     Dosage: 15 UG, UNK

REACTIONS (3)
  - Oral herpes [Recovered/Resolved]
  - Oral disorder [Recovered/Resolved]
  - Maternal exposure during pregnancy [Unknown]
